FAERS Safety Report 9098901 (Version 1)
Quarter: 2013Q1

REPORT INFORMATION
  Report Type: Report from Study
  Country: CA (occurrence: CA)
  Receive Date: 20130213
  Receipt Date: 20130213
  Transmission Date: 20140127
  Serious: Yes (Other)
  Sender: FDA-Public Use
  Company Number: CA-JNJFOC-20130200631

PATIENT
  Sex: Female
  Weight: 69.1 kg

DRUGS (7)
  1. REMICADE [Suspect]
     Indication: RHEUMATOID ARTHRITIS
     Route: 042
     Dates: start: 20081112
  2. METHOTREXATE [Concomitant]
     Route: 065
  3. MICARDIS [Concomitant]
     Route: 065
  4. NAPROXEN [Concomitant]
     Route: 065
  5. LIPITOR [Concomitant]
     Route: 065
  6. NOVOCHLOROQUINE [Concomitant]
     Route: 065
  7. FOLIC ACID [Concomitant]
     Route: 065

REACTIONS (1)
  - Skin atrophy [Unknown]
